FAERS Safety Report 6190710-0 (Version None)
Quarter: 2009Q2

REPORT INFORMATION
  Report Type: 
  Country: None (occurrence: None)
  Receive Date: 20090514
  Receipt Date: 20090428
  Transmission Date: 20091009
  Serious: Yes (Hospitalization)
  Sender: FDA-Public Use
  Company Number: TW-ABBOTT-09P-153-0569762-00

PATIENT
  Age: 27 Year
  Weight: 60 kg

DRUGS (4)
  1. REDUCTIL 10MG [Suspect]
     Indication: WEIGHT CONTROL
     Route: 048
     Dates: start: 20090101
  2. REDUCTIL 10MG [Suspect]
     Dates: start: 20090201
  3. REDUCTIL 10MG [Suspect]
  4. REDUCTIL 10MG [Suspect]
     Dates: start: 20090423, end: 20090424

REACTIONS (4)
  - BACK PAIN [None]
  - PYELONEPHRITIS [None]
  - PYREXIA [None]
  - URINE OUTPUT DECREASED [None]
